FAERS Safety Report 24222899 (Version 5)
Quarter: 2024Q4

REPORT INFORMATION
  Report Type: Report from Study
  Country: US (occurrence: US)
  Receive Date: 20240819
  Receipt Date: 20241217
  Transmission Date: 20250115
  Serious: Yes (Hospitalization, Other)
  Sender: SUNOVION
  Company Number: US-SUMITOMO PHARMA SWITZERLAND GMBH-2024SPA000912

PATIENT

DRUGS (12)
  1. ORGOVYX [Suspect]
     Active Substance: RELUGOLIX
     Indication: Prostate cancer
     Dosage: 360 MG, SINGLE
     Route: 048
  2. ORGOVYX [Suspect]
     Active Substance: RELUGOLIX
     Dosage: 120 MG, QOD
     Route: 048
  3. ORGOVYX [Suspect]
     Active Substance: RELUGOLIX
     Dosage: 120 MG, QD
     Route: 048
  4. XTANDI [Suspect]
     Active Substance: ENZALUTAMIDE
     Indication: Prostate cancer
     Dosage: 160 MG, BID
     Route: 065
  5. XTANDI [Suspect]
     Active Substance: ENZALUTAMIDE
     Dosage: 80 MG, QD
     Route: 065
  6. XTANDI [Suspect]
     Active Substance: ENZALUTAMIDE
     Dosage: 160 MG, QD
     Route: 065
  7. ASPIRIN [Concomitant]
     Active Substance: ASPIRIN
     Dosage: UNK
     Route: 065
  8. AFRIN [Concomitant]
     Active Substance: OXYMETAZOLINE
     Dosage: UNK
     Route: 065
  9. ALBUTEROL SULFATE [Concomitant]
     Active Substance: ALBUTEROL SULFATE
     Dosage: UNK
     Route: 065
  10. ELIQUIS [Concomitant]
     Active Substance: APIXABAN
     Dosage: UNK
     Route: 065
  11. GABAPENTIN [Concomitant]
     Active Substance: GABAPENTIN
     Dosage: UNK
     Route: 065
  12. SERTRALINE [Concomitant]
     Active Substance: SERTRALINE HYDROCHLORIDE
     Dosage: UNK
     Route: 065

REACTIONS (7)
  - Multiple fractures [Unknown]
  - Limb crushing injury [Unknown]
  - Rib fracture [Unknown]
  - Joint injury [Unknown]
  - Road traffic accident [Unknown]
  - Multiple injuries [Unknown]
  - Hot flush [Not Recovered/Not Resolved]

NARRATIVE: CASE EVENT DATE: 20240101
